FAERS Safety Report 9806585 (Version 1)
Quarter: 2014Q1

REPORT INFORMATION
  Report Type: Spontaneous
  Country: US (occurrence: US)
  Receive Date: 20140109
  Receipt Date: 20140109
  Transmission Date: 20141002
  Serious: Yes (Disabling)
  Sender: FDA-Public Use
  Company Number: US-PFIZER INC-2014004763

PATIENT
  Age: 56 Year
  Sex: Female
  Weight: 74 kg

DRUGS (12)
  1. CHANTIX [Suspect]
     Indication: SMOKING CESSATION THERAPY
     Dosage: UNK
     Route: 048
     Dates: start: 2007, end: 2007
  2. CELECOXIB [Concomitant]
     Dosage: 200 MG, UNK
  3. OMEPRAZOLE [Concomitant]
     Dosage: UNK
  4. NORTRIPTYLINE [Concomitant]
     Dosage: UNK
  5. CYMBALTA [Concomitant]
     Dosage: UNK
  6. ZOLOFT [Concomitant]
     Dosage: UNK
  7. PROPRANOLOL [Concomitant]
     Dosage: UNK
  8. LISINOPRIL [Concomitant]
     Dosage: UNK
  9. CEPHALEXIN [Concomitant]
     Dosage: UNK
  10. TOPIRAMATE [Concomitant]
     Dosage: UNK
  11. HYDROCODONE W/ACETAMINOPHEN [Concomitant]
     Dosage: 5/350 MG, AS NEEDED
  12. IMITREX [Concomitant]
     Dosage: UNK

REACTIONS (1)
  - Accident at work [Unknown]
